FAERS Safety Report 11621009 (Version 2)
Quarter: 2015Q4

REPORT INFORMATION
  Report Type: Spontaneous
  Country: US (occurrence: US)
  Receive Date: 20151012
  Receipt Date: 20151116
  Transmission Date: 20160304
  Serious: Yes (Other)
  Sender: FDA-Public Use
  Company Number: US-SUNOVION-2015SUN000454

PATIENT
  Age: 41 Year
  Sex: Female
  Weight: 78 kg

DRUGS (10)
  1. LATUDA [Suspect]
     Active Substance: LURASIDONE HYDROCHLORIDE
     Dosage: 60 MG, QD
     Route: 048
     Dates: start: 20150625, end: 20150714
  2. XANAX [Concomitant]
     Active Substance: ALPRAZOLAM
     Dosage: UNK, QD
     Route: 048
     Dates: start: 20150523
  3. LATUDA [Suspect]
     Active Substance: LURASIDONE HYDROCHLORIDE
     Dosage: 40 MG, QD
     Route: 048
     Dates: start: 20150611, end: 20150624
  4. BENADRYL [Concomitant]
     Active Substance: DIPHENHYDRAMINE HYDROCHLORIDE
     Dosage: UNK, QD
     Route: 048
  5. LATUDA [Suspect]
     Active Substance: LURASIDONE HYDROCHLORIDE
     Dosage: 80 MG, QD
     Route: 048
     Dates: start: 20150715
  6. LATUDA [Suspect]
     Active Substance: LURASIDONE HYDROCHLORIDE
     Dosage: 100 MG, QD
     Route: 048
  7. LAMOTRIGINE A [Suspect]
     Active Substance: LAMOTRIGINE
     Dosage: UNK
     Dates: start: 20150513
  8. VITAMIN D [Concomitant]
     Active Substance: CHOLECALCIFEROL
     Dosage: UNK, QD
     Route: 048
  9. LATUDA [Suspect]
     Active Substance: LURASIDONE HYDROCHLORIDE
     Indication: BIPOLAR DISORDER
     Dosage: 20 MG, QD
     Route: 048
     Dates: start: 20150513, end: 20150610
  10. ADDERALL [Concomitant]
     Active Substance: AMPHETAMINE ASPARTATE\AMPHETAMINE SULFATE\DEXTROAMPHETAMINE SACCHARATE\DEXTROAMPHETAMINE SULFATE
     Dosage: UNK, QD
     Route: 048
     Dates: start: 20150602

REACTIONS (10)
  - Blindness [Unknown]
  - Stress [Unknown]
  - Lacrimation increased [Unknown]
  - Ocular hyperaemia [Not Recovered/Not Resolved]
  - Depression [Unknown]
  - Visual impairment [Not Recovered/Not Resolved]
  - Emotional distress [Unknown]
  - Insomnia [Unknown]
  - Malaise [Unknown]
  - Optic neuritis [Recovering/Resolving]

NARRATIVE: CASE EVENT DATE: 20150730
